FAERS Safety Report 16306369 (Version 2)
Quarter: 2019Q3

REPORT INFORMATION
  Report Type: Spontaneous
  Country: PT (occurrence: PT)
  Receive Date: 20190513
  Receipt Date: 20190904
  Transmission Date: 20191004
  Serious: Yes (Death, Hospitalization, Other)
  Sender: FDA-Public Use
  Company Number: PT-JNJFOC-20190508904

PATIENT
  Age: 49 Year
  Sex: Female

DRUGS (10)
  1. DOXORUBICIN HYDROCHLORIDE. [Suspect]
     Active Substance: DOXORUBICIN HYDROCHLORIDE
     Indication: ACUTE LYMPHOCYTIC LEUKAEMIA
     Dates: start: 2017
  2. CYCLOPHOSPHAMIDE. [Suspect]
     Active Substance: CYCLOPHOSPHAMIDE
     Indication: ACUTE LYMPHOCYTIC LEUKAEMIA
     Route: 065
     Dates: start: 2017
  3. VINCRISTINE SULFATE. [Suspect]
     Active Substance: VINCRISTINE SULFATE
     Indication: ACUTE LYMPHOCYTIC LEUKAEMIA
     Route: 065
     Dates: start: 2017
  4. MEROPENEM. [Suspect]
     Active Substance: MEROPENEM
     Indication: KLEBSIELLA INFECTION
     Route: 065
     Dates: start: 2017
  5. COLISTIN [Suspect]
     Active Substance: COLISTIN
     Dosage: A LOADING DOSE OF 8 MU IV
     Route: 042
     Dates: start: 2017
  6. MEROPENEM. [Suspect]
     Active Substance: MEROPENEM
     Route: 065
     Dates: start: 2017
  7. DEXAMETHASONE. [Suspect]
     Active Substance: DEXAMETHASONE
     Indication: ACUTE LYMPHOCYTIC LEUKAEMIA
     Route: 065
     Dates: start: 2017
  8. COLISTIN [Suspect]
     Active Substance: COLISTIN
     Dosage: 5 MU IV Q12H
     Route: 042
     Dates: start: 2017
  9. COLISTIN [Suspect]
     Active Substance: COLISTIN
     Indication: KLEBSIELLA INFECTION
     Dosage: FOLLOWED BY A MAINTENANCE DOSE OF 4 MU IV Q12H
     Route: 042
     Dates: start: 2017
  10. AMIKACIN SULFATE. [Suspect]
     Active Substance: AMIKACIN SULFATE
     Indication: KLEBSIELLA INFECTION
     Route: 065
     Dates: start: 2017

REACTIONS (10)
  - Osteomyelitis bacterial [Fatal]
  - Neutropenic colitis [Fatal]
  - Multiple organ dysfunction syndrome [Fatal]
  - Klebsiella bacteraemia [Fatal]
  - Drug resistance [Fatal]
  - Product use in unapproved indication [Unknown]
  - Neutropenia [Fatal]
  - Off label use [Unknown]
  - Neutropenic sepsis [Fatal]
  - Klebsiella infection [Fatal]

NARRATIVE: CASE EVENT DATE: 2017
